FAERS Safety Report 4514077-6 (Version None)
Quarter: 2004Q4

REPORT INFORMATION
  Report Type: 
  Country: None (occurrence: None)
  Receive Date: 20041130
  Receipt Date: 20041123
  Transmission Date: 20050328
  Serious: Yes (Hospitalization)
  Sender: FDA-Public Use
  Company Number: IT-GLAXOSMITHKLINE-B0358444A

PATIENT
  Age: 67 Year
  Sex: Male

DRUGS (4)
  1. AMOXYCILLIN + CLAVULANIC ACID [Suspect]
     Indication: GLOSSITIS
     Route: 048
     Dates: start: 20041006, end: 20041012
  2. HUMAN INSULIN [Concomitant]
     Indication: DIABETES MELLITUS
     Route: 065
  3. ITRACONAZOLE [Concomitant]
     Indication: GLOSSITIS
     Dosage: 100MG PER DAY
     Route: 048
     Dates: start: 20041015, end: 20041023
  4. LORAZEPAM [Concomitant]
     Route: 048

REACTIONS (1)
  - PANCYTOPENIA [None]
